FAERS Safety Report 20353308 (Version 1)
Quarter: 2022Q1

REPORT INFORMATION
  Report Type: Spontaneous
  Country: US (occurrence: US)
  Receive Date: 20220119
  Receipt Date: 20220119
  Transmission Date: 20220423
  Serious: No
  Sender: FDA-Public Use
  Company Number: US-JUBILANT CADISTA PHARMACEUTICALS-2021JUB00008

PATIENT
  Sex: Female

DRUGS (1)
  1. TERAZOSIN [Suspect]
     Active Substance: TERAZOSIN HYDROCHLORIDE
     Dosage: UNK

REACTIONS (4)
  - Mitral valve incompetence [Unknown]
  - Pruritus [Unknown]
  - Visual impairment [Unknown]
  - Reaction to excipient [Unknown]
